FAERS Safety Report 23762322 (Version 1)
Quarter: 2024Q2

REPORT INFORMATION
  Report Type: Spontaneous
  Country: RO (occurrence: RO)
  Receive Date: 20240419
  Receipt Date: 20240419
  Transmission Date: 20240715
  Serious: Yes (Other)
  Sender: FDA-Public Use
  Company Number: RO-TEVA-VS-3183954

PATIENT
  Age: 43 Year
  Sex: Female

DRUGS (1)
  1. COPAXONE [Suspect]
     Active Substance: GLATIRAMER ACETATE
     Indication: Relapsing-remitting multiple sclerosis
     Dosage: DOSAGE: 20 MG/ML EVERY DAY ADMINISTRATION
     Route: 065
     Dates: start: 201701, end: 201712

REACTIONS (8)
  - Urticarial vasculitis [Unknown]
  - Hypoaesthesia [Recovering/Resolving]
  - Micturition urgency [Recovering/Resolving]
  - Burning sensation [Recovering/Resolving]
  - Asthma [Recovering/Resolving]
  - Motor dysfunction [Recovering/Resolving]
  - Uterine leiomyoma [Unknown]
  - Uterine haemorrhage [Unknown]

NARRATIVE: CASE EVENT DATE: 20170101
